FAERS Safety Report 7481539-1 (Version None)
Quarter: 2011Q2

REPORT INFORMATION
  Report Type: 
  Country: None (occurrence: None)
  Receive Date: 20110516
  Receipt Date: 20110509
  Transmission Date: 20111010
  Serious: Yes (Death, Hospitalization)
  Sender: FDA-Public Use
  Company Number: US-NAPPMUNDI-GBR-2011-0008168

PATIENT
  Age: 22 Year
  Sex: Male

DRUGS (6)
  1. MORPHINE SULFATE [Suspect]
     Indication: DRUG ABUSE
  2. CODEINE SULFATE [Suspect]
     Indication: DRUG ABUSE
  3. HEROIN [Suspect]
     Indication: DRUG ABUSE
  4. 6-ACETYLMORPHINE [Suspect]
     Indication: DRUG ABUSE
  5. DOXYLAMINE SUCCINATE [Suspect]
     Indication: DRUG ABUSE
  6. MEPHEDRONE [Suspect]
     Indication: DRUG ABUSE

REACTIONS (1)
  - TOXICITY TO VARIOUS AGENTS [None]
